FAERS Safety Report 23800173 (Version 1)
Quarter: 2024Q2

REPORT INFORMATION
  Report Type: Spontaneous
  Country: US (occurrence: None)
  Receive Date: 20240429
  Receipt Date: 20240429
  Transmission Date: 20240716
  Serious: No
  Sender: FDA-Public Use
  Company Number: None

PATIENT
  Age: 40 Year
  Sex: Female
  Weight: 65.25 kg

DRUGS (1)
  1. BOTOX [Suspect]
     Active Substance: ONABOTULINUMTOXINA

REACTIONS (6)
  - Dysacusis [None]
  - Muscle twitching [None]
  - Blepharospasm [None]
  - Dyspnoea [None]
  - Trismus [None]
  - Dry eye [None]

NARRATIVE: CASE EVENT DATE: 20240229
